FAERS Safety Report 5280619-9 (Version None)
Quarter: 2007Q1

REPORT INFORMATION
  Report Type: 
  Country: None (occurrence: None)
  Receive Date: 20061221
  Receipt Date: 20060727
  Transmission Date: 20070707
  Serious: No
  Sender: FDA-Public Use
  Company Number: US-CVT-061637

PATIENT
  Sex: Female

DRUGS (3)
  1. RANEXA [Suspect]
     Indication: ANGINA PECTORIS
     Dates: start: 20060101
  2. ACIPHEX [Concomitant]
  3. NEXIUM [Concomitant]

REACTIONS (2)
  - CONSTIPATION [None]
  - THERAPEUTIC RESPONSE UNEXPECTED [None]
